FAERS Safety Report 6078138-5 (Version None)
Quarter: 2009Q1

REPORT INFORMATION
  Report Type: 
  Country: None (occurrence: None)
  Receive Date: 20090213
  Receipt Date: 20090206
  Transmission Date: 20090719
  Serious: Yes (Other)
  Sender: FDA-Public Use
  Company Number: US-B.I. PHARMACEUTICALS,INC./RIDGEFIELD-2009-BP-01540BP

PATIENT
  Sex: Female
  Weight: 3 kg

DRUGS (4)
  1. VIRAMUNE [Suspect]
     Indication: HIV INFECTION
     Dosage: 400MG
     Route: 015
     Dates: start: 20080326
  2. PREZISTA [Suspect]
     Indication: HIV INFECTION
     Dosage: 800MG
     Route: 015
     Dates: start: 20071120, end: 20080325
  3. COMBIVIR [Suspect]
     Indication: HIV INFECTION
     Route: 015
     Dates: start: 20020304
  4. RITONAVIR [Suspect]
     Indication: HIV INFECTION
     Dosage: 100MG
     Route: 015
     Dates: start: 20071120, end: 20080325

REACTIONS (1)
  - PREMATURE BABY [None]
